FAERS Safety Report 9796452 (Version 1)
Quarter: 2014Q1

REPORT INFORMATION
  Report Type: Spontaneous
  Country: IT (occurrence: IT)
  Receive Date: 20140103
  Receipt Date: 20140103
  Transmission Date: 20141002
  Serious: Yes (Disabling, Other)
  Sender: FDA-Public Use
  Company Number: IT-009507513-1312ITA012219

PATIENT
  Age: 77 Year
  Sex: Female

DRUGS (7)
  1. FOSAVANCE [Suspect]
     Indication: OSTEOPOROSIS
     Dosage: UNK
     Route: 048
     Dates: start: 20080101, end: 20131223
  2. LOSARTAN POTASSIUM [Concomitant]
     Dosage: UNK
     Route: 048
     Dates: start: 2002
  3. HYDROCHLOROTHIAZIDE [Concomitant]
     Route: 048
  4. LANSOPRAZOLE [Concomitant]
  5. CARDIRENE [Concomitant]
  6. SEQUACOR [Concomitant]
  7. ZUGLIMET [Concomitant]

REACTIONS (1)
  - Osteonecrosis [Unknown]
